FAERS Safety Report 11261099 (Version 1)
Quarter: 2015Q3

REPORT INFORMATION
  Report Type: Spontaneous
  Country: US (occurrence: US)
  Receive Date: 20150710
  Receipt Date: 20150710
  Transmission Date: 20151125
  Serious: No
  Sender: FDA-Public Use
  Company Number: US-BAXALTA-2015BLT000368

PATIENT
  Sex: Male

DRUGS (1)
  1. HYQVIA [Suspect]
     Active Substance: HUMAN IMMUNOGLOBULIN G\HYALURONIDASE RECOMBINANT HUMAN
     Indication: PRODUCT USED FOR UNKNOWN INDICATION
     Dosage: 100 G, 1X A MONTH
     Route: 065

REACTIONS (5)
  - Nausea [Unknown]
  - Swollen tongue [Unknown]
  - Dyspnoea [Unknown]
  - Chest pain [Unknown]
  - Drug intolerance [Unknown]
